FAERS Safety Report 19905423 (Version 1)
Quarter: 2021Q3

REPORT INFORMATION
  Report Type: Spontaneous
  Country: US (occurrence: US)
  Receive Date: 20210930
  Receipt Date: 20210930
  Transmission Date: 20211014
  Serious: Yes (Hospitalization)
  Sender: FDA-Public Use
  Company Number: None

PATIENT
  Age: 69 Year
  Sex: Male

DRUGS (1)
  1. EVEROLIMUS 5 MG PAR PHARMACEUTICAL [Suspect]
     Active Substance: EVEROLIMUS
     Indication: MALIGNANT URINARY TRACT NEOPLASM
     Route: 048
     Dates: start: 20200701

REACTIONS (2)
  - Hypotension [None]
  - Asthenia [None]

NARRATIVE: CASE EVENT DATE: 20210922
